FAERS Safety Report 13186351 (Version 1)
Quarter: 2017Q1

REPORT INFORMATION
  Report Type: Spontaneous
  Country: DE (occurrence: DE)
  Receive Date: 20170204
  Receipt Date: 20170204
  Transmission Date: 20170428
  Serious: Yes (Other)
  Sender: FDA-Public Use
  Company Number: DE-TEVA-735141GER

PATIENT
  Age: 28 Year
  Sex: Male

DRUGS (2)
  1. BACLOFEN. [Suspect]
     Active Substance: BACLOFEN
     Indication: DEPRESSION
     Dosage: 1 GRAM DAILY;
     Route: 065
  2. DIAZEPAM. [Suspect]
     Active Substance: DIAZEPAM
     Indication: DEPRESSION
     Dosage: 60 MILLIGRAM DAILY;
     Route: 065

REACTIONS (3)
  - Toxicity to various agents [Unknown]
  - Drug level increased [Unknown]
  - Drug dependence [Unknown]
